FAERS Safety Report 4868614-2 (Version None)
Quarter: 2005Q4

REPORT INFORMATION
  Report Type: 
  Country: None (occurrence: None)
  Receive Date: 20051223
  Receipt Date: 20051215
  Transmission Date: 20060501
  Serious: Yes (Hospitalization, Other)
  Sender: FDA-Public Use
  Company Number: 2005168783

PATIENT
  Age: 54 Year
  Sex: Female

DRUGS (4)
  1. SERTRALINE [Suspect]
     Indication: PERSECUTORY DELUSION
  2. HALOPERIDOL [Suspect]
     Indication: TREMOR
  3. RISPERIDONE [Suspect]
     Indication: MAJOR DEPRESSION
  4. OLANZAPINE [Suspect]
     Indication: MAJOR DEPRESSION

REACTIONS (8)
  - AGITATION [None]
  - DYSKINESIA [None]
  - EAR PAIN [None]
  - FLASHBACK [None]
  - JOINT STIFFNESS [None]
  - NIGHTMARE [None]
  - PERSECUTORY DELUSION [None]
  - SUICIDAL IDEATION [None]
